FAERS Safety Report 7877546-7 (Version None)
Quarter: 2011Q4

REPORT INFORMATION
  Report Type: 
  Country: None (occurrence: None)
  Receive Date: 20111031
  Receipt Date: 20111027
  Transmission Date: 20120403
  Serious: Yes (Hospitalization, Other)
  Sender: FDA-Public Use
  Company Number: JP-PFIZER INC-2010053664

PATIENT
  Age: 79 Year
  Sex: Male
  Weight: 71.5 kg

DRUGS (18)
  1. VARENICLINE TARTRATE [Suspect]
     Dosage: 1 MG, 2X/DAY
     Route: 048
     Dates: start: 20100416, end: 20100430
  2. ZOLPIDEM [Concomitant]
     Indication: INSOMNIA
     Dosage: UNK
     Route: 048
  3. CANDESARTAN CILEXETIL [Concomitant]
     Dosage: UNK
     Route: 048
  4. LOXONIN [Concomitant]
     Indication: HEADACHE
     Dosage: UNK
     Route: 048
     Dates: start: 20080710
  5. LANSOPRAZOLE [Concomitant]
     Indication: GASTROOESOPHAGEAL REFLUX DISEASE
     Dosage: UNK
     Route: 048
  6. ALLOPURINOL [Concomitant]
     Dosage: UNK
     Route: 048
  7. MUCOSTA [Concomitant]
     Indication: GASTRITIS
     Dosage: UNK
     Route: 048
  8. LASIX [Concomitant]
     Indication: OEDEMA
     Dosage: UNK
     Route: 048
  9. LOXONIN [Concomitant]
     Indication: PAIN IN EXTREMITY
  10. VARENICLINE TARTRATE [Suspect]
     Dosage: 0.5 MG, 2X/DAY
     Route: 048
     Dates: start: 20100412, end: 20100415
  11. NITRAZEPAM [Concomitant]
     Dosage: UNK
     Route: 048
  12. ASPIRIN [Concomitant]
     Indication: CEREBRAL INFARCTION
     Dosage: UNK
     Route: 048
     Dates: start: 20090417
  13. AMLODIPINE [Concomitant]
     Dosage: UNK
     Route: 048
  14. MAGNESIUM OXIDE [Concomitant]
     Indication: CONSTIPATION
     Dosage: UNK
     Route: 048
  15. VARENICLINE TARTRATE [Suspect]
     Dosage: 0.5 MG, 1X/DAY
     Route: 048
     Dates: start: 20100409, end: 20100411
  16. LENDORMIN [Concomitant]
     Dosage: UNK
     Route: 048
  17. URSO 250 [Concomitant]
     Indication: LIVER DISORDER
     Dosage: UNK
     Route: 048
  18. BROCIN-CODEINE [Concomitant]
     Indication: BRONCHITIS CHRONIC
     Dosage: UNK
     Route: 048
     Dates: start: 20091211, end: 20100401

REACTIONS (1)
  - ILEUS [None]
